FAERS Safety Report 9241378 (Version 1)
Quarter: 2013Q2

REPORT INFORMATION
  Report Type: Spontaneous
  Country: FR (occurrence: FR)
  Receive Date: 20130419
  Receipt Date: 20130419
  Transmission Date: 20140414
  Serious: Yes (Hospitalization, Other)
  Sender: FDA-Public Use
  Company Number: FR-009507513-0410FRA00065

PATIENT
  Sex: Male

DRUGS (1)
  1. MK-0966 [Suspect]
     Indication: ARTHRALGIA
     Dosage: 25 MG, QD
     Route: 048
     Dates: start: 20031017, end: 20040927

REACTIONS (2)
  - Myocardial infarction [Recovered/Resolved]
  - Hospitalisation [Recovered/Resolved]
